FAERS Safety Report 9482363 (Version 1)
Quarter: 2013Q3

REPORT INFORMATION
  Report Type: Spontaneous
  Country: FR (occurrence: FR)
  Receive Date: 20130828
  Receipt Date: 20130828
  Transmission Date: 20140515
  Serious: Yes (Hospitalization, Other)
  Sender: FDA-Public Use
  Company Number: FR-ROXANE LABORATORIES, INC.-2013-RO-01413RO

PATIENT
  Age: 29 Year
  Sex: Male

DRUGS (4)
  1. METHADONE [Suspect]
  2. ALCOHOL [Suspect]
  3. CANNABIS [Suspect]
  4. BENZODIAZEPINES [Concomitant]

REACTIONS (6)
  - Brain injury [Recovered/Resolved with Sequelae]
  - Overdose [Recovered/Resolved]
  - Hyperkalaemia [Recovered/Resolved]
  - Renal failure acute [Not Recovered/Not Resolved]
  - Crush syndrome [Unknown]
  - Cerebellar syndrome [Unknown]
